FAERS Safety Report 8447782-X (Version None)
Quarter: 2012Q2

REPORT INFORMATION
  Report Type: 
  Country: None (occurrence: None)
  Receive Date: 20120619
  Receipt Date: 20120615
  Transmission Date: 20120825
  Serious: Yes (Life-Threatening, Hospitalization, Other)
  Sender: FDA-Public Use
  Company Number: FR-GENZYME-CLOF-1002166

PATIENT
  Sex: Female

DRUGS (11)
  1. EVOLTRA [Suspect]
     Dosage: 30 MG/M2, QD (DAYS 2 TO 6)
     Route: 042
     Dates: start: 20120314, end: 20120318
  2. FILGRASTIM [Suspect]
     Dosage: 5 MG/KG, QD
     Route: 065
     Dates: start: 20120124, end: 20120129
  3. CYTARABINE [Suspect]
     Indication: ACUTE MYELOID LEUKAEMIA
     Dosage: 500 MG/M2, QD
     Route: 065
     Dates: start: 20111125, end: 20111127
  4. FILGRASTIM [Suspect]
     Indication: ACUTE MYELOID LEUKAEMIA
     Dosage: 5 MG/KG, QD
     Route: 065
     Dates: start: 20111125, end: 20111204
  5. FILGRASTIM [Suspect]
     Dosage: 5 MG/KG, QD (DAY 1 TO 6)
     Route: 042
     Dates: start: 20120313, end: 20120318
  6. CYTARABINE [Suspect]
     Dosage: 2000 MG/M2, QD
     Route: 065
     Dates: start: 20111202, end: 20111204
  7. CYTARABINE [Suspect]
     Dosage: 1000 MG/M2, QD
     Route: 065
     Dates: start: 20120124, end: 20120128
  8. EVOLTRA [Suspect]
     Indication: ACUTE MYELOID LEUKAEMIA
     Dosage: 30 MG/M2, QD
     Route: 065
     Dates: start: 20120125, end: 20120129
  9. CYTARABINE [Suspect]
     Dosage: 1000 MG/M2, QD (DAY 1 TO 5)
     Route: 042
     Dates: start: 20120313, end: 20120317
  10. DAUNORUBICIN HCL [Concomitant]
     Indication: ACUTE MYELOID LEUKAEMIA
     Dosage: 60 MG/M2, QD
     Route: 065
     Dates: start: 20111125, end: 20111127
  11. DAUNORUBICIN HCL [Concomitant]
     Dosage: 35 MG/M2, QD
     Route: 065
     Dates: start: 20111202, end: 20111203

REACTIONS (3)
  - PYREXIA [None]
  - BONE MARROW FAILURE [None]
  - DERMO-HYPODERMITIS [None]
